FAERS Safety Report 6882401-5 (Version None)
Quarter: 2010Q3

REPORT INFORMATION
  Report Type: 
  Country: None (occurrence: None)
  Receive Date: 20100729
  Receipt Date: 20091109
  Transmission Date: 20110219
  Serious: No
  Sender: FDA-Public Use
  Company Number: US-MYLANLABS-2009S1017133

PATIENT
  Age: 63 Year
  Sex: Male
  Weight: 65.77 kg

DRUGS (3)
  1. TRIAMTERENE AND HYDROCHLOROTHIAZIDE [Suspect]
     Indication: MENIERE'S DISEASE
     Route: 048
     Dates: start: 20090521, end: 20090908
  2. TRIAMTERENE AND HYDROCHLOROTHIAZIDE [Suspect]
     Route: 048
     Dates: start: 20090521, end: 20090908
  3. NIACIN [Concomitant]

REACTIONS (6)
  - DRUG INEFFECTIVE [None]
  - RASH MACULAR [None]
  - RASH PAPULAR [None]
  - RASH PRURITIC [None]
  - URTICARIA [None]
  - WEIGHT INCREASED [None]
